FAERS Safety Report 20431211 (Version 1)
Quarter: 2022Q1

REPORT INFORMATION
  Report Type: Spontaneous
  Country: US (occurrence: US)
  Receive Date: 20220204
  Receipt Date: 20220204
  Transmission Date: 20220423
  Serious: No
  Sender: FDA-Public Use
  Company Number: US-PERRIGO-21US001266

PATIENT
  Sex: Female
  Weight: 62.585 kg

DRUGS (2)
  1. TRETINOIN [Suspect]
     Active Substance: TRETINOIN
     Indication: Skin wrinkling
     Dosage: PEA-SIZED AMOUNT, ONCE NIGHTLY, PRN
     Route: 061
     Dates: start: 2018
  2. TRETINOIN [Suspect]
     Active Substance: TRETINOIN
     Indication: Rosacea

REACTIONS (1)
  - Drug effective for unapproved indication [Unknown]

NARRATIVE: CASE EVENT DATE: 20180101
